FAERS Safety Report 5296822-8 (Version None)
Quarter: 2007Q2

REPORT INFORMATION
  Report Type: 
  Country: None (occurrence: None)
  Receive Date: 20070413
  Receipt Date: 20070404
  Transmission Date: 20071010
  Serious: Yes (Other)
  Sender: FDA-Public Use
  Company Number: FR-PFIZER INC-2007027435

PATIENT
  Age: 41 Year
  Sex: Female

DRUGS (5)
  1. LYRICA [Suspect]
     Indication: BACK PAIN
  2. KETOPROFEN [Concomitant]
  3. PROPOFOL [Concomitant]
  4. TRAMADOL HCL [Concomitant]
  5. ZOMIG [Concomitant]

REACTIONS (2)
  - FALL [None]
  - VERTIGO [None]
